FAERS Safety Report 12547159 (Version 1)
Quarter: 2016Q3

REPORT INFORMATION
  Report Type: Spontaneous
  Country: IT (occurrence: IT)
  Receive Date: 20160711
  Receipt Date: 20160711
  Transmission Date: 20161109
  Serious: Yes (Other)
  Sender: FDA-Public Use
  Company Number: PHHY2016IT057026

PATIENT
  Age: 44 Year
  Sex: Female

DRUGS (3)
  1. BINOSTO [Concomitant]
     Active Substance: ALENDRONATE SODIUM
     Indication: PRODUCT USED FOR UNKNOWN INDICATION
     Route: 065
  2. DIBASE [Concomitant]
     Active Substance: CHOLECALCIFEROL
     Indication: PRODUCT USED FOR UNKNOWN INDICATION
     Route: 065
  3. EXJADE [Suspect]
     Active Substance: DEFERASIROX
     Indication: THALASSAEMIA BETA
     Dosage: 26 MG/KG DAILY
     Route: 048
     Dates: start: 20070101, end: 20160331

REACTIONS (5)
  - Urine calcium [Unknown]
  - Gravitational oedema [Recovering/Resolving]
  - Glycosuria [Unknown]
  - Polyuria [Unknown]
  - Nocturia [Recovering/Resolving]

NARRATIVE: CASE EVENT DATE: 20160301
